FAERS Safety Report 20300485 (Version 2)
Quarter: 2022Q1

REPORT INFORMATION
  Report Type: Report from Study
  Country: US (occurrence: US)
  Receive Date: 20220105
  Receipt Date: 20220113
  Transmission Date: 20220423
  Serious: Yes (Death, Life-Threatening, Hospitalization, Other)
  Sender: FDA-Public Use
  Company Number: US-PFIZER INC-202101883250

PATIENT
  Age: 55 Year
  Sex: Male
  Weight: 45.1 kg

DRUGS (3)
  1. TALAZOPARIB [Suspect]
     Active Substance: TALAZOPARIB
     Dosage: 250 UG, ON DAYS 1-7 WITH A 21 DAYS CYCLE
     Route: 048
     Dates: start: 20180326, end: 20180523
  2. CARBOPLATIN [Suspect]
     Active Substance: CARBOPLATIN
     Dosage: AUC 6 OVER 30 MIN ON DAY 1 WITH A 21 DAYS CYCLE
     Route: 042
     Dates: start: 20180326
  3. TAXOL [Suspect]
     Active Substance: PACLITAXEL
     Dosage: 80 MG/M2, OVER 1 HR ON DAYS 1, 8 AND 15 WITH A 21 DAYS CYCLE
     Route: 042
     Dates: start: 20180326

REACTIONS (3)
  - Neoplasm progression [Fatal]
  - Dyspnoea [Unknown]
  - Fatigue [Unknown]

NARRATIVE: CASE EVENT DATE: 20180529
